FAERS Safety Report 8137037-5 (Version None)
Quarter: 2012Q1

REPORT INFORMATION
  Report Type: 
  Country: None (occurrence: None)
  Receive Date: 20120215
  Receipt Date: 20120203
  Transmission Date: 20120608
  Serious: Yes (Hospitalization)
  Sender: FDA-Public Use
  Company Number: US-BIOGENIDEC-2012BI005178

PATIENT
  Sex: Female

DRUGS (7)
  1. AVONEX [Suspect]
     Indication: PRODUCT USED FOR UNKNOWN INDICATION
     Route: 030
  2. STEROIDS [Concomitant]
     Indication: STOMATITIS
  3. STEROIDS [Concomitant]
     Indication: PHARYNGEAL ULCERATION
  4. STEROIDS [Concomitant]
     Indication: URTICARIA
  5. REBIF [Concomitant]
  6. BETASERON [Concomitant]
     Dates: start: 20070101
  7. AMPYRA [Concomitant]
     Indication: PRODUCT USED FOR UNKNOWN INDICATION

REACTIONS (1)
  - GENERAL SYMPTOM [None]
